FAERS Safety Report 21650359 (Version 2)
Quarter: 2023Q2

REPORT INFORMATION
  Report Type: Spontaneous
  Country: US (occurrence: US)
  Receive Date: 20221128
  Receipt Date: 20230524
  Transmission Date: 20230722
  Serious: No
  Sender: FDA-Public Use
  Company Number: US-PFIZER INC-PV202200108498

PATIENT
  Age: 51 Year
  Sex: Female

DRUGS (2)
  1. IBRANCE [Suspect]
     Active Substance: PALBOCICLIB
     Dosage: 100 MG
     Dates: start: 20221017
  2. IBRANCE [Suspect]
     Active Substance: PALBOCICLIB
     Dosage: UNK (STRENGTH 75 MG)

REACTIONS (2)
  - Stomatitis [Unknown]
  - Epistaxis [Unknown]
